FAERS Safety Report 17584097 (Version 1)
Quarter: 2020Q1

REPORT INFORMATION
  Report Type: Spontaneous
  Country: CA (occurrence: CA)
  Receive Date: 20200326
  Receipt Date: 20200326
  Transmission Date: 20200409
  Serious: Yes (Other)
  Sender: FDA-Public Use
  Company Number: CA-ROCHE-2569491

PATIENT
  Age: 72 Year
  Sex: Female

DRUGS (30)
  1. HYDROXYQUINOLINE SULFATE [Concomitant]
     Active Substance: OXYQUINOLINE SULFATE
     Dosage: 1.0 DOSAGE FORMS
     Route: 065
  2. LEVOTHYROXINE SODIUM. [Concomitant]
     Active Substance: LEVOTHYROXINE SODIUM
     Indication: PRODUCT USED FOR UNKNOWN INDICATION
     Route: 048
  3. ACETAMINOPHEN. [Concomitant]
     Active Substance: ACETAMINOPHEN
     Route: 048
  4. COD LIVER OIL [Concomitant]
     Active Substance: COD LIVER OIL
     Route: 065
  5. HYDROXYQUINOLINE SULFATE [Concomitant]
     Active Substance: OXYQUINOLINE SULFATE
     Indication: PRODUCT USED FOR UNKNOWN INDICATION
     Route: 048
  6. METHYLPREDNISOLONE. [Concomitant]
     Active Substance: METHYLPREDNISOLONE
     Indication: PREMEDICATION
     Route: 048
  7. COD LIVER OIL [Concomitant]
     Active Substance: COD LIVER OIL
     Indication: PRODUCT USED FOR UNKNOWN INDICATION
     Route: 048
  8. FOLIC ACID. [Concomitant]
     Active Substance: FOLIC ACID
     Dosage: 1.0 DOSAGE FORMS
     Route: 065
  9. LEVOTHYROXINE SODIUM. [Concomitant]
     Active Substance: LEVOTHYROXINE SODIUM
     Dosage: 1.0 DOSAGE FORMS
     Route: 065
  10. METHYLPREDNISOLONE. [Concomitant]
     Active Substance: METHYLPREDNISOLONE
     Route: 042
  11. RITUXAN [Suspect]
     Active Substance: RITUXIMAB
     Indication: RHEUMATOID ARTHRITIS
     Dosage: 1.0 DOSAGE FORMS
     Route: 041
  12. METHOTREXATE. [Suspect]
     Active Substance: METHOTREXATE
     Indication: PRODUCT USED FOR UNKNOWN INDICATION
     Dosage: 1.0 DOSAGE FORMS
     Route: 065
  13. CHONDROITIN SULFATE [Concomitant]
     Active Substance: CHONDROITIN SULFATE (BOVINE)
     Indication: PREMEDICATION
     Route: 048
  14. CHONDROITIN SULFATE [Concomitant]
     Active Substance: CHONDROITIN SULFATE (BOVINE)
     Route: 065
  15. DIPHENHYDRAMINE HYDROCHLORIDE. [Concomitant]
     Active Substance: DIPHENHYDRAMINE HYDROCHLORIDE
     Indication: PREMEDICATION
     Route: 048
  16. PROLIA [Concomitant]
     Active Substance: DENOSUMAB
     Indication: PRODUCT USED FOR UNKNOWN INDICATION
     Dosage: 1.0 DOSAGE FORMS
     Route: 058
  17. MANGANESE CITRATE [Concomitant]
     Active Substance: MANGANESE CITRATE
  18. PROLIA [Concomitant]
     Active Substance: DENOSUMAB
     Route: 065
  19. SERRAPEPTASE [Concomitant]
     Active Substance: SERRAPEPTASE
     Route: 065
  20. SYNTHROID [Concomitant]
     Active Substance: LEVOTHYROXINE SODIUM
     Indication: PRODUCT USED FOR UNKNOWN INDICATION
     Dosage: 1.0 DOSAGE FORMS
     Route: 065
  21. GLUCOSAMINE SULFATE [Concomitant]
     Active Substance: GLUCOSAMINE SULFATE
  22. ACLASTA [Suspect]
     Active Substance: ZOLEDRONIC ACID
     Indication: PRODUCT USED FOR UNKNOWN INDICATION
     Route: 065
  23. FOLIC ACID. [Concomitant]
     Active Substance: FOLIC ACID
     Indication: PRODUCT USED FOR UNKNOWN INDICATION
     Route: 048
  24. PREDNISONE. [Concomitant]
     Active Substance: PREDNISONE
     Route: 065
  25. SERRAPEPTASE [Concomitant]
     Active Substance: SERRAPEPTASE
     Indication: PRODUCT USED FOR UNKNOWN INDICATION
     Route: 065
  26. SYNTHROID [Concomitant]
     Active Substance: LEVOTHYROXINE SODIUM
     Route: 065
  27. ACETAMINOPHEN. [Concomitant]
     Active Substance: ACETAMINOPHEN
     Indication: PREMEDICATION
     Route: 048
  28. DIPHENHYDRAMINE HYDROCHLORIDE. [Concomitant]
     Active Substance: DIPHENHYDRAMINE HYDROCHLORIDE
     Route: 048
  29. PREDNISONE. [Concomitant]
     Active Substance: PREDNISONE
     Route: 065
  30. VITAMIN C [Concomitant]
     Active Substance: ASCORBIC ACID

REACTIONS (18)
  - Blood creatinine increased [Not Recovered/Not Resolved]
  - Cough [Not Recovered/Not Resolved]
  - Elbow deformity [Not Recovered/Not Resolved]
  - Musculoskeletal pain [Not Recovered/Not Resolved]
  - Ill-defined disorder [Not Recovered/Not Resolved]
  - Neck pain [Not Recovered/Not Resolved]
  - Pain [Not Recovered/Not Resolved]
  - Arthralgia [Not Recovered/Not Resolved]
  - Pain in extremity [Not Recovered/Not Resolved]
  - Allergy to plants [Not Recovered/Not Resolved]
  - Insomnia [Not Recovered/Not Resolved]
  - Joint effusion [Not Recovered/Not Resolved]
  - Productive cough [Not Recovered/Not Resolved]
  - C-reactive protein increased [Not Recovered/Not Resolved]
  - Therapeutic product effect decreased [Not Recovered/Not Resolved]
  - Hand deformity [Not Recovered/Not Resolved]
  - Joint range of motion decreased [Not Recovered/Not Resolved]
  - Wrist deformity [Not Recovered/Not Resolved]
